FAERS Safety Report 5747156-6 (Version None)
Quarter: 2008Q2

REPORT INFORMATION
  Report Type: 
  Country: None (occurrence: None)
  Receive Date: 20080520
  Receipt Date: 20080429
  Transmission Date: 20081010
  Serious: Yes (Hospitalization)
  Sender: FDA-Public Use
  Company Number: E2090-00453-SOL-US

PATIENT
  Age: 44 Year
  Sex: Female
  Weight: 84.09 kg

DRUGS (3)
  1. ZONEGRAN [Suspect]
     Indication: ARTHRITIS
     Dosage: 100 MG, 1 IN 1 D, ORAL
     Route: 048
     Dates: start: 20080117, end: 20080117
  2. CELEBREX [Suspect]
     Indication: ARTHRITIS
     Dosage: 200 MG, 2 IN 1 D, ORAL
     Route: 048
     Dates: start: 20060101, end: 20080123
  3. LYRICA [Concomitant]

REACTIONS (8)
  - CARDIAC ENZYMES INCREASED [None]
  - CHEST DISCOMFORT [None]
  - DYSPNOEA [None]
  - FEELING ABNORMAL [None]
  - GRIP STRENGTH DECREASED [None]
  - HYPERSENSITIVITY [None]
  - INFLUENZA LIKE ILLNESS [None]
  - PAIN [None]
